FAERS Safety Report 6571979-7 (Version None)
Quarter: 2010Q1

REPORT INFORMATION
  Report Type: 
  Country: None (occurrence: None)
  Receive Date: 20100205
  Receipt Date: 20100125
  Transmission Date: 20100710
  Serious: Yes (Other)
  Sender: FDA-Public Use
  Company Number: GB-ELI_LILLY_AND_COMPANY-GB201001005698

PATIENT
  Sex: Male

DRUGS (2)
  1. OLANZAPINE [Suspect]
     Dosage: 10 MG, UNK
     Route: 048
  2. WARFARIN SODIUM [Concomitant]

REACTIONS (1)
  - HENOCH-SCHONLEIN PURPURA [None]
